FAERS Safety Report 8112998-9 (Version None)
Quarter: 2012Q1

REPORT INFORMATION
  Report Type: 
  Country: None (occurrence: None)
  Receive Date: 20120203
  Receipt Date: 20120123
  Transmission Date: 20120608
  Serious: Yes (Death)
  Sender: FDA-Public Use
  Company Number: ES-ELI_LILLY_AND_COMPANY-ES201201007145

PATIENT
  Sex: Female

DRUGS (8)
  1. OMEPRAZOLE [Concomitant]
     Indication: GASTROINTESTINAL DISORDER
     Dosage: UNK, QD
     Route: 048
     Dates: end: 20111221
  2. INSULIN [Concomitant]
     Indication: TYPE 1 DIABETES MELLITUS
     Dosage: UNK
     Route: 048
     Dates: end: 20111221
  3. FORTEO [Suspect]
     Indication: OSTEOPOROSIS
     Dosage: 20 UG, QD
     Route: 058
  4. LOSARTAN POTASSIUM [Concomitant]
     Indication: CARDIAC FAILURE
     Dosage: 50 MG, QD
     Dates: end: 20111221
  5. ATORVASTATIN [Concomitant]
     Dosage: UNK, QD
     Route: 048
     Dates: end: 20111221
  6. DIGOXIN [Concomitant]
     Indication: CARDIAC FAILURE
     Dosage: UNK
     Route: 048
     Dates: end: 20111221
  7. FUROSEMIDE [Concomitant]
     Indication: OEDEMA
     Dosage: 2 DF, QD
     Route: 048
     Dates: end: 20111221
  8. ACETAMINOPHEN [Concomitant]
     Indication: ANALGESIC THERAPY
     Route: 048

REACTIONS (2)
  - RENAL FAILURE [None]
  - CARDIAC FAILURE [None]
